FAERS Safety Report 6511213-7 (Version None)
Quarter: 2009Q4

REPORT INFORMATION
  Report Type: 
  Country: None (occurrence: None)
  Receive Date: 20091222
  Receipt Date: 20090226
  Transmission Date: 20100525
  Serious: No
  Sender: FDA-Public Use
  Company Number: US-ASTRAZENECA-2009UW05433

PATIENT
  Age: 60 Year
  Sex: Female
  Weight: 77.1 kg

DRUGS (8)
  1. CRESTOR [Suspect]
     Indication: BLOOD CHOLESTEROL INCREASED
     Route: 048
     Dates: start: 20080801
  2. CRESTOR [Suspect]
     Route: 048
     Dates: start: 20090101
  3. SLOW NIACIN [Concomitant]
     Route: 048
  4. SYNTHROID [Concomitant]
     Route: 048
  5. LOVAZA [Concomitant]
     Indication: CARDIAC DISORDER
     Route: 048
  6. PROTONICS [Concomitant]
     Route: 048
  7. MYCARDIS [Concomitant]
     Dosage: 80/25 MG
     Route: 048
  8. ASPIRIN [Concomitant]
     Route: 048

REACTIONS (2)
  - CONSTIPATION [None]
  - DIARRHOEA [None]
